FAERS Safety Report 22159863 (Version 2)
Quarter: 2023Q2

REPORT INFORMATION
  Report Type: Spontaneous
  Country: JP (occurrence: JP)
  Receive Date: 20230331
  Receipt Date: 20230411
  Transmission Date: 20230722
  Serious: Yes (Hospitalization)
  Sender: FDA-Public Use
  Company Number: JP-ASTELLAS-2023JP003933

PATIENT
  Age: 74 Year
  Sex: Male

DRUGS (1)
  1. PADCEV [Suspect]
     Active Substance: ENFORTUMAB VEDOTIN-EJFV
     Indication: Transitional cell carcinoma
     Dosage: 1.25 MG/KG, 1, 8, 15 ADMINISTERED, 22 WITH A BREAK IN 1 CYCLE OF 28 DAYS
     Route: 065
     Dates: start: 20230201, end: 20230215

REACTIONS (2)
  - Gastroenteritis eosinophilic [Recovering/Resolving]
  - Device dislocation [Recovered/Resolved]

NARRATIVE: CASE EVENT DATE: 20230218
